FAERS Safety Report 7307709-0 (Version None)
Quarter: 2011Q1

REPORT INFORMATION
  Report Type: 
  Country: None (occurrence: None)
  Receive Date: 20110223
  Receipt Date: 20110214
  Transmission Date: 20110831
  Serious: Yes (Other)
  Sender: FDA-Public Use
  Company Number: CA-JNJFOC-20100707576

PATIENT
  Sex: Female
  Weight: 88 kg

DRUGS (7)
  1. HERPES MEDICATON [Concomitant]
  2. REMICADE [Suspect]
     Indication: PSORIATIC ARTHROPATHY
     Route: 042
  3. REMICADE [Suspect]
     Dosage: THIS WAS THE 33RD DOSE
     Route: 042
  4. MULTI-VITAMINS [Concomitant]
  5. METHOTREXATE [Concomitant]
  6. FOLIC ACID [Concomitant]
  7. REMICADE [Suspect]
     Route: 042

REACTIONS (5)
  - PRURITUS [None]
  - ERYTHEMA [None]
  - DRUG EXPOSURE DURING PREGNANCY [None]
  - HYPERTENSION [None]
  - INFUSION RELATED REACTION [None]
